FAERS Safety Report 16680257 (Version 3)
Quarter: 2019Q3

REPORT INFORMATION
  Report Type: Spontaneous
  Country: MA (occurrence: MA)
  Receive Date: 20190807
  Receipt Date: 20190820
  Transmission Date: 20191004
  Serious: Yes (Death)
  Sender: FDA-Public Use
  Company Number: MA-BIOVITRUM-2019MA2178

PATIENT
  Age: 4 Month

DRUGS (2)
  1. NITISINONE [Suspect]
     Active Substance: NITISINONE
     Indication: TYROSINAEMIA
  2. NITISINONE [Suspect]
     Active Substance: NITISINONE

REACTIONS (1)
  - Death [Fatal]

NARRATIVE: CASE EVENT DATE: 20190723
